FAERS Safety Report 4547143-X (Version None)
Quarter: 2005Q1

REPORT INFORMATION
  Report Type: 
  Country: None (occurrence: None)
  Receive Date: 20050105
  Receipt Date: 20041227
  Transmission Date: 20050727
  Serious: Yes (Life-Threatening, Other)
  Sender: FDA-Public Use
  Company Number: 200421233BWH

PATIENT

DRUGS (1)
  1. NIMOTOP [Suspect]
     Dosage: 60 MG, Q4HR

REACTIONS (2)
  - CARDIAC ARREST [None]
  - CARDIOTOXICITY [None]
